FAERS Safety Report 24225785 (Version 1)
Quarter: 2024Q3

REPORT INFORMATION
  Report Type: Other
  Country: CA (occurrence: CA)
  Receive Date: 20240820
  Receipt Date: 20240820
  Transmission Date: 20241017
  Serious: Yes (Other)
  Sender: APOTEX
  Company Number: CA-APOTEX-2024AP009385

PATIENT
  Age: 5 Year
  Sex: Female

DRUGS (3)
  1. ZOLEDRONIC ACID [Suspect]
     Active Substance: ZOLEDRONIC ACID
     Indication: Calcinosis
     Dosage: 0.025 MILLIGRAM/KILOGRAM, 1 EVERY 3 MONTHS
     Route: 042
  2. ZOLEDRONIC ACID [Suspect]
     Active Substance: ZOLEDRONIC ACID
     Dosage: 16 MILLIGRAM/KILOGRAM, QD
     Route: 042
  3. ZOLEDRONIC ACID [Suspect]
     Active Substance: ZOLEDRONIC ACID
     Dosage: 250 MILLIGRAM, QD
     Route: 065

REACTIONS (3)
  - Calcinosis [Unknown]
  - Disease progression [Unknown]
  - Product use in unapproved indication [Unknown]
